FAERS Safety Report 9937162 (Version 3)
Quarter: 2014Q2

REPORT INFORMATION
  Report Type: Spontaneous
  Country: FR (occurrence: FR)
  Receive Date: 20140301
  Receipt Date: 20140603
  Transmission Date: 20141212
  Serious: Yes (Hospitalization)
  Sender: FDA-Public Use
  Company Number: FR-ROCHE-1283077

PATIENT
  Age: 59 Year
  Sex: Female

DRUGS (36)
  1. VESANOID [Suspect]
     Indication: ACUTE PROMYELOCYTIC LEUKAEMIA
     Route: 048
     Dates: start: 20130423, end: 20130502
  2. VESANOID [Suspect]
     Route: 048
     Dates: start: 20130508, end: 20130515
  3. VESANOID [Suspect]
     Route: 048
     Dates: start: 20130524, end: 20130529
  4. VESANOID [Suspect]
     Route: 048
     Dates: start: 20130626, end: 20130626
  5. VESANOID [Suspect]
     Route: 048
     Dates: start: 20130627, end: 20130627
  6. VESANOID [Suspect]
     Route: 048
     Dates: start: 20130704, end: 20130705
  7. VESANOID [Suspect]
     Route: 048
     Dates: start: 20130709, end: 20130709
  8. VESANOID [Suspect]
     Route: 048
     Dates: start: 20130725, end: 20130807
  9. VESANOID [Suspect]
     Route: 048
     Dates: start: 20130828, end: 20130909
  10. VESANOID [Suspect]
     Route: 048
     Dates: start: 20130626
  11. VESANOID [Suspect]
     Route: 048
     Dates: start: 20130627
  12. VESANOID [Suspect]
     Route: 048
     Dates: start: 20130704
  13. VESANOID [Suspect]
     Route: 048
     Dates: start: 20130705
  14. VESANOID [Suspect]
     Route: 048
     Dates: start: 20130709
  15. VESANOID [Suspect]
     Route: 048
     Dates: start: 20130725
  16. VESANOID [Suspect]
     Route: 048
     Dates: start: 20130807
  17. ZELITREX [Suspect]
     Indication: ANTIVIRAL PROPHYLAXIS
     Route: 048
     Dates: start: 201306, end: 20130909
  18. NORSET [Suspect]
     Indication: PRODUCT USED FOR UNKNOWN INDICATION
     Route: 048
     Dates: end: 20130909
  19. ZYVOXID [Suspect]
     Indication: STAPHYLOCOCCAL INFECTION
     Route: 048
     Dates: start: 20130827, end: 20130904
  20. TRISENOX [Suspect]
     Indication: ACUTE PROMYELOCYTIC LEUKAEMIA
     Route: 041
     Dates: start: 20130626, end: 20130626
  21. TRISENOX [Suspect]
     Route: 042
     Dates: start: 20130627, end: 20130630
  22. TRISENOX [Suspect]
     Route: 042
     Dates: start: 20130704, end: 20130705
  23. TRISENOX [Suspect]
     Route: 042
     Dates: start: 20130709, end: 20130709
  24. TRISENOX [Suspect]
     Route: 042
     Dates: start: 20130715, end: 20130715
  25. TRISENOX [Suspect]
     Route: 042
     Dates: start: 20130718, end: 20130719
  26. TRISENOX [Suspect]
     Route: 042
     Dates: start: 20130828
  27. TRISENOX [Suspect]
     Route: 042
     Dates: start: 20130829
  28. TRISENOX [Suspect]
     Route: 042
     Dates: start: 20130830
  29. TRISENOX [Suspect]
     Route: 042
     Dates: start: 20130903
  30. TRISENOX [Suspect]
     Route: 042
     Dates: start: 20130904
  31. TRISENOX [Suspect]
     Route: 042
     Dates: start: 20130905
  32. PROZAC [Suspect]
     Indication: PRODUCT USED FOR UNKNOWN INDICATION
     Route: 048
     Dates: end: 20130909
  33. INEXIUM [Concomitant]
     Route: 048
  34. CARDENSIEL [Concomitant]
     Route: 048
     Dates: end: 201307
  35. SERESTA [Concomitant]
     Route: 065
     Dates: end: 201307
  36. IMOVANE [Concomitant]
     Route: 048
     Dates: end: 201306

REACTIONS (6)
  - Renal failure acute [Recovered/Resolved with Sequelae]
  - Retinoic acid syndrome [Recovered/Resolved with Sequelae]
  - Pneumonia pneumococcal [Recovered/Resolved with Sequelae]
  - Bacterial diarrhoea [Recovered/Resolved with Sequelae]
  - Sepsis [Recovered/Resolved with Sequelae]
  - Oedema [Recovered/Resolved with Sequelae]
